FAERS Safety Report 9067802 (Version 1)
Quarter: 2013Q1

REPORT INFORMATION
  Report Type: Spontaneous
  Country: GB (occurrence: GB)
  Receive Date: 20130215
  Receipt Date: 20130215
  Transmission Date: 20140127
  Serious: Yes (Hospitalization)
  Sender: FDA-Public Use
  Company Number: GB-ABBOTT-13P-167-1046072-00

PATIENT
  Age: 46 Year
  Sex: Male
  Weight: 79 kg

DRUGS (2)
  1. CLARITHROMYCIN [Suspect]
     Indication: LOWER RESPIRATORY TRACT INFECTION
     Dosage: CUMULATIVE DOSE TO 1ST REACTION:2000MG
     Route: 048
     Dates: start: 20121228, end: 20130105
  2. DISULFIRAM [Interacting]
     Indication: ALCOHOLISM
     Dosage: CUMULATIVE DOSE TO 1ST REACTION:34408MG
     Route: 048
     Dates: start: 20120711

REACTIONS (5)
  - Gait disturbance [Recovered/Resolved]
  - Confusional state [Recovered/Resolved]
  - Memory impairment [Recovered/Resolved]
  - Drug interaction [Unknown]
  - Unevaluable event [Unknown]
